FAERS Safety Report 15454007 (Version 2)
Quarter: 2018Q4

REPORT INFORMATION
  Report Type: Report from Study
  Country: US (occurrence: US)
  Receive Date: 20181002
  Receipt Date: 20181008
  Transmission Date: 20190204
  Serious: Yes (Death, Life-Threatening, Hospitalization, Other)
  Sender: FDA-Public Use
  Company Number: US-BRISTOL-MYERS SQUIBB COMPANY-BMS-2018-068025

PATIENT
  Age: 78 Year
  Sex: Female
  Weight: 82.7 kg

DRUGS (2)
  1. IPILIMUMAB [Suspect]
     Active Substance: IPILIMUMAB
     Indication: UTERINE CANCER
     Dosage: 1 MG/KG, QCYCLE
     Route: 042
     Dates: start: 20180420
  2. NIVOLUMAB [Suspect]
     Active Substance: NIVOLUMAB
     Indication: UTERINE CANCER
     Dosage: 240 MG, Q2WK
     Route: 042
     Dates: start: 20180420

REACTIONS (11)
  - Hiatus hernia [Unknown]
  - Pneumonia klebsiella [Unknown]
  - Hyperammonaemia [Unknown]
  - Septic shock [Fatal]
  - Acute kidney injury [Unknown]
  - Abdominal pain [Unknown]
  - Portal hypertension [Unknown]
  - Encephalopathy [Unknown]
  - Vomiting [Unknown]
  - Hepatic cirrhosis [Unknown]
  - Metastases to peritoneum [Unknown]

NARRATIVE: CASE EVENT DATE: 20180629
